FAERS Safety Report 7258026-9 (Version None)
Quarter: 2011Q1

REPORT INFORMATION
  Report Type: 
  Country: None (occurrence: None)
  Receive Date: 20110129
  Receipt Date: 20100614
  Transmission Date: 20110831
  Serious: Yes (Other)
  Sender: FDA-Public Use
  Company Number: US-ABBOTT-10P-163-0652051-00

PATIENT
  Sex: Female
  Weight: 49.94 kg

DRUGS (3)
  1. HUMIRA [Suspect]
     Indication: RHEUMATOID ARTHRITIS
     Route: 058
     Dates: start: 20090101
  2. THYROID MEDICATION [Concomitant]
     Indication: THYROID DISORDER
  3. METHOTREXATE [Concomitant]
     Indication: RHEUMATOID ARTHRITIS

REACTIONS (3)
  - SPINAL FRACTURE [None]
  - BACK PAIN [None]
  - FALL [None]
